FAERS Safety Report 4603516-8 (Version None)
Quarter: 2005Q1

REPORT INFORMATION
  Report Type: 
  Country: None (occurrence: None)
  Receive Date: 20050214
  Receipt Date: 20041129
  Transmission Date: 20050727
  Serious: No
  Sender: FDA-Public Use
  Company Number: USA041184745

PATIENT
  Age: 67 Year
  Sex: Male
  Weight: 66 kg

DRUGS (1)
  1. CIALIS [Suspect]
     Indication: ERECTILE DYSFUNCTION
     Dosage: 20 MG/L DAY
     Dates: start: 20041115

REACTIONS (5)
  - CHILLS [None]
  - ERYTHEMA [None]
  - GROIN PAIN [None]
  - MYALGIA [None]
  - PYREXIA [None]
